FAERS Safety Report 9775127 (Version 2)
Quarter: 2014Q1

REPORT INFORMATION
  Report Type: Report from Study
  Country: ES (occurrence: ES)
  Receive Date: 20131220
  Receipt Date: 20140102
  Transmission Date: 20141002
  Serious: Yes (Death)
  Sender: FDA-Public Use
  Company Number: ES-ACTELION-A-CH2013-92638

PATIENT
  Age: 46 Year
  Sex: Female
  Weight: 68 kg

DRUGS (2)
  1. TRACLEER [Suspect]
     Indication: SCLERODERMA ASSOCIATED DIGITAL ULCER
     Dosage: 125 MG, QD
     Route: 048
     Dates: end: 20130308
  2. TRACLEER [Suspect]
     Dosage: 125 MG, BID
     Route: 048
     Dates: start: 20040929

REACTIONS (3)
  - Cerebrovascular accident [Fatal]
  - Skin ulcer [Unknown]
  - Disease progression [Unknown]
